FAERS Safety Report 18612003 (Version 1)
Quarter: 2020Q4

REPORT INFORMATION
  Report Type: Spontaneous
  Country: US (occurrence: US)
  Receive Date: 20201214
  Receipt Date: 20201214
  Transmission Date: 20210114
  Serious: Yes (Death)
  Sender: FDA-Public Use
  Company Number: US-SAOL THERAPEUTICS-2020SAO00508

PATIENT
  Age: 15 Year
  Sex: Female

DRUGS (2)
  1. LIORESAL [Suspect]
     Active Substance: BACLOFEN
     Indication: CEREBRAL PALSY
  2. LIORESAL [Suspect]
     Active Substance: BACLOFEN
     Indication: MUSCLE SPASTICITY
     Dosage: 500.1 ?G, \DAY
     Route: 037
     Dates: end: 20201126

REACTIONS (2)
  - Cardiac arrest [Fatal]
  - Brain injury [Fatal]

NARRATIVE: CASE EVENT DATE: 20201126
